FAERS Safety Report 19150760 (Version 3)
Quarter: 2021Q2

REPORT INFORMATION
  Report Type: Spontaneous
  Country: IT (occurrence: IT)
  Receive Date: 20210419
  Receipt Date: 20210425
  Transmission Date: 20210717
  Serious: Yes (Hospitalization)
  Sender: FDA-Public Use
  Company Number: IT-JNJFOC-20210425576

PATIENT
  Age: 24 Year
  Sex: Female

DRUGS (4)
  1. EFEXOR [Suspect]
     Active Substance: VENLAFAXINE HYDROCHLORIDE
     Indication: DEPRESSION
     Dosage: ; IN TOTAL
     Route: 048
     Dates: start: 20210405, end: 20210405
  2. HALDOL [Suspect]
     Active Substance: HALOPERIDOL
     Indication: INTENTIONAL SELF-INJURY
  3. EFEXOR [Suspect]
     Active Substance: VENLAFAXINE HYDROCHLORIDE
     Indication: INTENTIONAL SELF-INJURY
  4. HALDOL [Suspect]
     Active Substance: HALOPERIDOL
     Indication: MIXED ANXIETY AND DEPRESSIVE DISORDER
     Dosage: ; IN TOTAL
     Route: 048
     Dates: start: 20210405, end: 20210405

REACTIONS (5)
  - Toxicity to various agents [Recovering/Resolving]
  - Seizure [Recovering/Resolving]
  - Drug abuse [Recovering/Resolving]
  - Intentional self-injury [Recovering/Resolving]
  - Tonic convulsion [Recovering/Resolving]

NARRATIVE: CASE EVENT DATE: 20210405
